FAERS Safety Report 8386529-2 (Version None)
Quarter: 2012Q2

REPORT INFORMATION
  Report Type: 
  Country: None (occurrence: None)
  Receive Date: 20120525
  Receipt Date: 20110503
  Transmission Date: 20120825
  Serious: No
  Sender: FDA-Public Use
  Company Number: US-GLAXOSMITHKLINE-A0925580A

PATIENT
  Sex: Female

DRUGS (2)
  1. NO CONCURRENT MEDICATION [Concomitant]
  2. VERAMYST [Suspect]
     Indication: RHINITIS ALLERGIC
     Route: 045
     Dates: start: 20100101

REACTIONS (4)
  - RHINITIS ALLERGIC [None]
  - INFLAMMATION [None]
  - NASAL CONGESTION [None]
  - SWELLING [None]
